FAERS Safety Report 12123745 (Version 1)
Quarter: 2016Q1

REPORT INFORMATION
  Report Type: Spontaneous
  Country: US (occurrence: None)
  Receive Date: 20160226
  Receipt Date: 20160226
  Transmission Date: 20160526
  Serious: Yes (Other)
  Sender: FDA-Public Use
  Company Number: None

PATIENT
  Age: 33 Year
  Sex: Male
  Weight: 136.08 kg

DRUGS (9)
  1. TIZADINE [Concomitant]
     Active Substance: TIZANIDINE HYDROCHLORIDE
  2. ARIPIPRAZOLE. [Suspect]
     Active Substance: ARIPIPRAZOLE
     Indication: BIPOLAR DISORDER
     Route: 048
     Dates: start: 20160208, end: 20160211
  3. ARIPIPRAZOLE. [Suspect]
     Active Substance: ARIPIPRAZOLE
     Indication: DEPRESSION
     Route: 048
     Dates: start: 20160208, end: 20160211
  4. ARIPIPRAZOLE. [Suspect]
     Active Substance: ARIPIPRAZOLE
     Indication: MOOD SWINGS
     Route: 048
     Dates: start: 20160208, end: 20160211
  5. SYBMBICOURT [Concomitant]
  6. COLONDINE [Concomitant]
  7. ARIPIPRAZOLE. [Suspect]
     Active Substance: ARIPIPRAZOLE
     Indication: ANXIETY
     Route: 048
     Dates: start: 20160208, end: 20160211
  8. PRISTIQ EXTENDED RELEASE [Concomitant]
     Active Substance: DESVENLAFAXINE SUCCINATE
  9. TRAZODONE [Concomitant]
     Active Substance: TRAZODONE HYDROCHLORIDE

REACTIONS (5)
  - Anxiety [None]
  - Mood swings [None]
  - Depression [None]
  - Condition aggravated [None]
  - Bipolar disorder [None]

NARRATIVE: CASE EVENT DATE: 20160206
